FAERS Safety Report 7215630-1 (Version None)
Quarter: 2011Q1

REPORT INFORMATION
  Report Type: 
  Country: None (occurrence: None)
  Receive Date: 20110104
  Receipt Date: 20110104
  Transmission Date: 20110831
  Serious: Yes (Other)
  Sender: FDA-Public Use
  Company Number: None

PATIENT
  Sex: Male
  Weight: 84.369 kg

DRUGS (3)
  1. OXYCONTIN 80 MLG PERDUE PHARMA [Suspect]
     Indication: NERVE INJURY
     Dosage: 3 2/DAILY PO
     Route: 048
     Dates: start: 20000101, end: 20100103
  2. OXYCONTIN 80 MLG PERDUE PHARMA [Suspect]
     Indication: RADICULOPATHY
     Dosage: 3 2/DAILY PO
     Route: 048
     Dates: start: 20000101, end: 20100103
  3. OXYCONTIN 80 MLG PERDUE PHARMA [Suspect]
     Indication: INTERVERTEBRAL DISC PROTRUSION
     Dosage: 3 2/DAILY PO
     Route: 048
     Dates: start: 20000101, end: 20100103

REACTIONS (5)
  - GASTROINTESTINAL DISORDER [None]
  - HEADACHE [None]
  - ANGER [None]
  - PRODUCT FORMULATION ISSUE [None]
  - DRUG EFFECT DECREASED [None]
